FAERS Safety Report 9555368 (Version 2)
Quarter: 2013Q4

REPORT INFORMATION
  Report Type: Spontaneous
  Country: US (occurrence: US)
  Receive Date: 20130926
  Receipt Date: 20131121
  Transmission Date: 20140711
  Serious: Yes (Death)
  Sender: FDA-Public Use
  Company Number: US-BRACCO-009925

PATIENT
  Age: 13 Year
  Sex: Male
  Weight: 32 kg

DRUGS (7)
  1. BROMFED [Concomitant]
  2. AMOXICILLIN [Concomitant]
  3. IBUPROFEN [Concomitant]
  4. OTHER RESPIRATORY SYSTEM PRODUCTS [Concomitant]
     Dosage: ROUTINELY BUT NOT DAILY
     Route: 055
  5. MULTIHANCE [Suspect]
     Indication: NUCLEAR MAGNETIC RESONANCE IMAGING BRAIN
     Route: 042
     Dates: start: 20130917, end: 20130917
  6. VYVANSE [Concomitant]
  7. CLONIDINE [Concomitant]

REACTIONS (4)
  - Cardio-respiratory arrest [Fatal]
  - Convulsion [Unknown]
  - Vomiting [Unknown]
  - Nausea [Unknown]
